FAERS Safety Report 21383469 (Version 2)
Quarter: 2022Q3

REPORT INFORMATION
  Report Type: Spontaneous
  Country: US (occurrence: US)
  Receive Date: 20220927
  Receipt Date: 20220928
  Transmission Date: 20221026
  Serious: Yes (Hospitalization)
  Sender: FDA-Public Use
  Company Number: US-BEH-2022149904

PATIENT
  Sex: Male

DRUGS (14)
  1. ZEMAIRA [Suspect]
     Active Substance: .ALPHA.1-PROTEINASE INHIBITOR HUMAN
     Indication: Alpha-1 antitrypsin deficiency
     Dosage: 8865 INTERNATIONAL UNIT, QW
     Route: 042
  2. BROVANA [Concomitant]
     Active Substance: ARFORMOTEROL TARTRATE
  3. MORPHINE [Concomitant]
     Active Substance: MORPHINE
  4. VITAMIN D3 [Concomitant]
     Active Substance: CHOLECALCIFEROL
  5. IPRATROPII BROMIDUM [Concomitant]
  6. PULMICORT TURBUHALER [Concomitant]
     Active Substance: BUDESONIDE
  7. ALLOPURINOL [Concomitant]
     Active Substance: ALLOPURINOL
  8. DOXYCYCLINE HYCLATE [Concomitant]
     Active Substance: DOXYCYCLINE HYCLATE
  9. AZITHROMYCIN [Concomitant]
     Active Substance: AZITHROMYCIN
  10. PREDNISOLONE [Concomitant]
     Active Substance: PREDNISOLONE
  11. ALBUTEROL SULFATE [Concomitant]
     Active Substance: ALBUTEROL SULFATE
  12. DOXYCYCLINE HYDROCHLORIDE [Concomitant]
     Active Substance: DOXYCYCLINE HYDROCHLORIDE
  13. CYCLOBENZAPRINE [Concomitant]
     Active Substance: CYCLOBENZAPRINE
  14. THEOPHYLLINE ANHYDROUS [Concomitant]
     Active Substance: THEOPHYLLINE ANHYDROUS

REACTIONS (1)
  - Pneumonia [Not Recovered/Not Resolved]
